FAERS Safety Report 4955577-4 (Version None)
Quarter: 2006Q1

REPORT INFORMATION
  Report Type: 
  Country: None (occurrence: None)
  Receive Date: 20060328
  Receipt Date: 20050930
  Transmission Date: 20060701
  Serious: Yes (Hospitalization, Disabling)
  Sender: FDA-Public Use
  Company Number: US-MERCK-0510USA01396

PATIENT
  Age: 51 Year
  Sex: Male
  Weight: 74 kg

DRUGS (2)
  1. VIOXX [Suspect]
     Indication: NECK PAIN
     Route: 048
     Dates: start: 20011205, end: 20020101
  2. VIOXX [Suspect]
     Indication: SHOULDER PAIN
     Route: 048
     Dates: start: 20011205, end: 20020101

REACTIONS (12)
  - ARTHROPATHY [None]
  - CARDIAC DISORDER [None]
  - CARDIOVASCULAR DISORDER [None]
  - CEREBROVASCULAR ACCIDENT [None]
  - LIMB INJURY [None]
  - LIVER DISORDER [None]
  - MYOCARDIAL INFARCTION [None]
  - NECK PAIN [None]
  - PAIN [None]
  - PULMONARY EMBOLISM [None]
  - RENAL DISORDER [None]
  - SHOULDER PAIN [None]
